FAERS Safety Report 6811736-7 (Version None)
Quarter: 2010Q3

REPORT INFORMATION
  Report Type: 
  Country: None (occurrence: None)
  Receive Date: 20100701
  Receipt Date: 20100625
  Transmission Date: 20110219
  Serious: No
  Sender: FDA-Public Use
  Company Number: US-BIOGENIDEC-2010BI021245

PATIENT
  Age: 71 Year
  Sex: Female

DRUGS (2)
  1. AVONEX [Suspect]
     Indication: MULTIPLE SCLEROSIS
     Route: 030
     Dates: start: 20000101, end: 20030101
  2. AVONEX [Suspect]
     Route: 030
     Dates: start: 20030101

REACTIONS (7)
  - ANAEMIA [None]
  - FEELING ABNORMAL [None]
  - GAIT DISTURBANCE [None]
  - OEDEMA PERIPHERAL [None]
  - OSTEOPOROSIS [None]
  - VITAMIN B12 DECREASED [None]
  - WEIGHT INCREASED [None]
